FAERS Safety Report 10407639 (Version 2)
Quarter: 2014Q3

REPORT INFORMATION
  Report Type: Report from Study
  Country: AR (occurrence: AR)
  Receive Date: 20140825
  Receipt Date: 20140923
  Transmission Date: 20150326
  Serious: Yes (Hospitalization, Other)
  Sender: FDA-Public Use
  Company Number: PHHY2014AR105829

PATIENT
  Sex: Female

DRUGS (2)
  1. SINTROM [Suspect]
     Active Substance: ACENOCOUMAROL
  2. EXFORGE [Suspect]
     Active Substance: AMLODIPINE BESYLATE\VALSARTAN
     Indication: HYPERTENSION
     Dosage: 2 DF (160/ 5 MG), DAILY
     Dates: start: 201405

REACTIONS (4)
  - Infection [Unknown]
  - Swelling [Unknown]
  - Haematoma infection [Recovering/Resolving]
  - Abdominal pain upper [Unknown]
